FAERS Safety Report 5333763-1 (Version None)
Quarter: 2007Q2

REPORT INFORMATION
  Report Type: 
  Country: None (occurrence: None)
  Receive Date: 20070524
  Receipt Date: 20070516
  Transmission Date: 20071010
  Serious: Yes (Other)
  Sender: FDA-Public Use
  Company Number: US-PFIZER INC-2007030015

PATIENT
  Sex: Female
  Weight: 87.1 kg

DRUGS (1)
  1. CHANTIX [Suspect]
     Indication: SMOKING CESSATION THERAPY
     Dates: start: 20070328, end: 20070401

REACTIONS (11)
  - CHEST DISCOMFORT [None]
  - CHEST PAIN [None]
  - FEELING ABNORMAL [None]
  - HEADACHE [None]
  - HEART RATE IRREGULAR [None]
  - HYPERHIDROSIS [None]
  - MIGRAINE [None]
  - NIGHTMARE [None]
  - PALPITATIONS [None]
  - PHOTOPHOBIA [None]
  - SYNCOPE [None]
